FAERS Safety Report 19043126 (Version 4)
Quarter: 2021Q2

REPORT INFORMATION
  Report Type: Spontaneous
  Country: US (occurrence: US)
  Receive Date: 20210323
  Receipt Date: 20210406
  Transmission Date: 20210717
  Serious: No
  Sender: FDA-Public Use
  Company Number: US-TEVA-2021-US-1891918

PATIENT
  Sex: Female

DRUGS (3)
  1. ADIPEX?P [Suspect]
     Active Substance: PHENTERMINE HYDROCHLORIDE
     Route: 065
     Dates: start: 2019
  2. ADIPEX?P [Suspect]
     Active Substance: PHENTERMINE HYDROCHLORIDE
     Dosage: FORM OF ADMIN: TABLETS AND CAPSULES, AS WELL AS THE SLOW RELEASE CAPSULE
     Route: 065
     Dates: start: 20210301
  3. ADIPEX?P [Suspect]
     Active Substance: PHENTERMINE HYDROCHLORIDE
     Indication: WEIGHT DECREASED
     Route: 065
     Dates: start: 2010

REACTIONS (4)
  - Insomnia [Unknown]
  - Therapeutic product effect decreased [Unknown]
  - Drug ineffective [Unknown]
  - Asthenia [Unknown]

NARRATIVE: CASE EVENT DATE: 2019
